FAERS Safety Report 7720337-8 (Version None)
Quarter: 2011Q3

REPORT INFORMATION
  Report Type: 
  Country: None (occurrence: None)
  Receive Date: 20110831
  Receipt Date: 20110823
  Transmission Date: 20111222
  Serious: No
  Sender: FDA-Public Use
  Company Number: US-PFIZER INC-2011194417

PATIENT
  Sex: Female

DRUGS (1)
  1. ADVIL LIQUI-GELS [Suspect]
     Dosage: UNK
     Route: 048
     Dates: start: 20110801, end: 20110801

REACTIONS (9)
  - RASH [None]
  - CRYING [None]
  - CONTUSION [None]
  - JOINT SWELLING [None]
  - ANGER [None]
  - FEELING ABNORMAL [None]
  - PAIN [None]
  - BLISTER [None]
  - LIMB INJURY [None]
